FAERS Safety Report 10479433 (Version 2)
Quarter: 2014Q3

REPORT INFORMATION
  Report Type: Report from Study
  Country: US (occurrence: US)
  Receive Date: 20140926
  Receipt Date: 20140926
  Transmission Date: 20150326
  Serious: Yes (Other)
  Sender: FDA-Public Use
  Company Number: US-ALEXION PHARMACEUTICALS INC-A201305758

PATIENT
  Sex: Female

DRUGS (1)
  1. SOLIRIS [Suspect]
     Active Substance: ECULIZUMAB
     Indication: PAROXYSMAL NOCTURNAL HAEMOGLOBINURIA
     Dosage: UNK, QM
     Route: 042
     Dates: start: 20130517

REACTIONS (8)
  - Dyspnoea [Unknown]
  - Diabetes mellitus [Unknown]
  - Hypertension [Unknown]
  - Fatigue [Unknown]
  - Quality of life decreased [Unknown]
  - Inappropriate schedule of drug administration [Not Recovered/Not Resolved]
  - Coronary artery disease [Unknown]
  - Peripheral vascular disorder [Unknown]
